FAERS Safety Report 10005948 (Version 6)
Quarter: 2014Q2

REPORT INFORMATION
  Report Type: Report from Study
  Country: AU (occurrence: AU)
  Receive Date: 20140313
  Receipt Date: 20140619
  Transmission Date: 20141212
  Serious: Yes (Hospitalization, Other)
  Sender: FDA-Public Use
  Company Number: PHHY2014AU023631

PATIENT
  Age: 53 Year
  Sex: Female

DRUGS (29)
  1. CLOZARIL [Suspect]
     Dosage: 300 MG, AT NIGHT
     Dates: start: 20131127, end: 20140224
  2. SODIUM VALPROATE [Concomitant]
     Dosage: 300 MG, NIGHT
  3. RISPERIDONE [Concomitant]
     Dosage: 2 MG, NIGHT
  4. RISPERIDONE [Concomitant]
     Dosage: 5 MG (1 MG MORNING AND 4 MG NIGHT), DAILY
  5. CITALOPRAM [Concomitant]
     Dosage: 20 MG, MORNING
  6. CITALOPRAM [Concomitant]
     Dosage: 40 MG, MORNING
  7. LORAZEPAM [Concomitant]
     Dosage: 0.5 MG, QID
  8. LORAZEPAM [Concomitant]
     Dosage: 1 TO 2 MG UPTO 6 MG, PRN
  9. SPIRIVA [Concomitant]
     Dosage: 18 UG (1 PUFF), NIGHT
  10. IPRATROPIUM [Concomitant]
     Dosage: 21 UG, (2 PUFFS TDS)
  11. NICOTINE [Concomitant]
     Dosage: 1 DF, DAILY
  12. SODIBIC [Concomitant]
     Dosage: 10 ML, QID
  13. ENOXAPARIN [Concomitant]
     Dosage: 40 MG, DAILY
     Route: 058
  14. MEROPENEM [Concomitant]
     Dosage: 1 G, Q8H
     Route: 042
  15. DIAZEPAM [Concomitant]
     Dosage: 5 MG, QID
  16. OXAZEPAM [Concomitant]
     Dosage: 15 MG, NIGHT
  17. OXAZEPAM [Concomitant]
     Dosage: 15 TO 30 MG PRN
  18. RISPERIDONE CONSTA [Concomitant]
     Dosage: 25 MG, BIW
     Route: 030
  19. PROMETHAZINE [Concomitant]
     Dosage: 25 MG, NIGHT
  20. OLANZAPINE [Concomitant]
     Dosage: 5 TO 10 MG PRN QID
  21. SALBUTAMOL [Concomitant]
     Dosage: 5 MG (1 T0 2 PUFFS), Q4H PRN
  22. PARACETAMOL [Concomitant]
     Dosage: 1 G, QID (PRN)
  23. ONDANSETRON [Concomitant]
     Dosage: 4 TO 8 MG, TID (PRN)
     Route: 042
  24. ONDANSETRON [Concomitant]
     Dosage: 4 TO 8 MG, TID (PRN)
     Route: 060
  25. METOCLOPRAMIDE [Concomitant]
     Dosage: 10 MG, TID (PRN)
     Route: 042
  26. METOCLOPRAMIDE [Concomitant]
     Dosage: 10 MG, TID (PRN)
     Route: 048
  27. MIDAZOLAM [Concomitant]
     Dosage: 5 MG, PRN
     Route: 042
  28. FENTANYL [Concomitant]
     Dosage: 50 TO 100 UG, PRN
     Route: 042
  29. FENTANYL [Concomitant]
     Dosage: 50 TO 100 UG, PRN
     Route: 058

REACTIONS (34)
  - Agranulocytosis [Unknown]
  - Leukopenia [Recovering/Resolving]
  - Neutropenia [Recovering/Resolving]
  - White blood cell count increased [Recovered/Resolved]
  - Neutrophil count increased [Recovered/Resolved]
  - Bacterial infection [Unknown]
  - Schizoaffective disorder [Unknown]
  - Granuloma [Unknown]
  - Dyspnoea [Unknown]
  - Haematocrit decreased [Recovered/Resolved]
  - Obstructive airways disorder [Unknown]
  - Neutrophil toxic granulation present [Unknown]
  - Shift to the left [Unknown]
  - Poor venous access [Unknown]
  - Vitamin B12 abnormal [Unknown]
  - Blood folate abnormal [Unknown]
  - Red blood cell count decreased [Recovered/Resolved]
  - Metamyelocyte count increased [Unknown]
  - Myelocyte count increased [Unknown]
  - Promyelocyte count increased [Unknown]
  - Blast cell count increased [Unknown]
  - Blood creatinine abnormal [Unknown]
  - Blood pressure increased [Unknown]
  - Platelet count abnormal [Unknown]
  - Basophil count increased [Recovered/Resolved]
  - Liver function test abnormal [Unknown]
  - Eosinophil count increased [Recovered/Resolved]
  - Monocyte count increased [Recovered/Resolved]
  - Blood creatine phosphokinase decreased [Unknown]
  - Lymphocyte count decreased [Recovered/Resolved]
  - Haemoglobin decreased [Recovered/Resolved]
  - Heart rate increased [Unknown]
  - Pyrexia [Unknown]
  - Lymphocyte count increased [Recovered/Resolved]
